FAERS Safety Report 6020892-2 (Version None)
Quarter: 2008Q4

REPORT INFORMATION
  Report Type: 
  Country: None (occurrence: None)
  Receive Date: 20081229
  Receipt Date: 20081224
  Transmission Date: 20090506
  Serious: Yes (Hospitalization)
  Sender: FDA-Public Use
  Company Number: JP-BAYER-200610583BYL

PATIENT
  Age: 86 Year
  Sex: Female
  Weight: 36 kg

DRUGS (8)
  1. AVELOX [Suspect]
     Indication: INFECTION
     Dosage: TOTAL DAILY DOSE: 400 MG  UNIT DOSE: 400 MG
     Route: 048
     Dates: start: 20060412, end: 20060417
  2. GASTER D [Suspect]
     Indication: REFLUX OESOPHAGITIS
     Dosage: TOTAL DAILY DOSE: 20 MG  UNIT DOSE: 10 MG
     Route: 048
     Dates: start: 20060329, end: 20060417
  3. SODIUM CHLORIDE 0.9% [Concomitant]
     Indication: HYPONATRAEMIA
     Dosage: TOTAL DAILY DOSE: 6 G
     Route: 048
     Dates: start: 20060329, end: 20060417
  4. LAC B [Concomitant]
     Indication: DISBACTERIOSIS
     Dosage: TOTAL DAILY DOSE: 3 G
     Route: 048
     Dates: start: 20060329
  5. SEPAMIT-R [Concomitant]
     Indication: HYPERTENSION
     Dosage: TOTAL DAILY DOSE: 20 MG  UNIT DOSE: 10 MG
     Route: 048
     Dates: start: 20060329, end: 20060417
  6. LASIX [Concomitant]
     Indication: OEDEMA PERIPHERAL
     Dosage: TOTAL DAILY DOSE: 10 MG  UNIT DOSE: 20 MG
     Route: 048
     Dates: start: 20060412, end: 20060417
  7. EMPYNASE PD [Concomitant]
     Indication: JOINT SWELLING
     Dosage: TOTAL DAILY DOSE: 5400 IU  UNIT DOSE: 1800 IU
     Route: 048
     Dates: start: 20060412, end: 20060417
  8. LORCAM [Concomitant]
     Indication: ARTHRALGIA
     Dosage: TOTAL DAILY DOSE: 12 MG  UNIT DOSE: 4 MG
     Route: 048
     Dates: start: 20060414, end: 20060417

REACTIONS (2)
  - BRADYCARDIA [None]
  - ELECTROCARDIOGRAM QT PROLONGED [None]
